FAERS Safety Report 15739384 (Version 1)
Quarter: 2018Q4

REPORT INFORMATION
  Report Type: Spontaneous
  Country: IT (occurrence: IT)
  Receive Date: 20181219
  Receipt Date: 20181219
  Transmission Date: 20190205
  Serious: Yes (Hospitalization)
  Sender: FDA-Public Use
  Company Number: IT-009507513-1812ITA006833

PATIENT
  Age: 83 Year
  Sex: Male

DRUGS (8)
  1. SIMVASTATIN. [Concomitant]
     Active Substance: SIMVASTATIN
  2. ZYLORIC [Concomitant]
     Active Substance: ALLOPURINOL
     Dosage: 300 MILLIGRAM
  3. PRITOR (TELMISARTAN) [Interacting]
     Active Substance: TELMISARTAN
     Dosage: 80 MILLIGRAM, QD; DRUG INTERACTION
  4. CARDURA [Concomitant]
     Active Substance: DOXAZOSIN MESYLATE
     Dosage: 4 MILLIGRAM
  5. ELIQUIS [Concomitant]
     Active Substance: APIXABAN
     Dosage: 10 MILLIGRAM
  6. REMERON [Suspect]
     Active Substance: MIRTAZAPINE
  7. LASIX [Concomitant]
     Active Substance: FUROSEMIDE
     Dosage: 25 MILLIGRAM
  8. LANOXIN [Interacting]
     Active Substance: DIGOXIN
     Dosage: DRUG INTERACTION

REACTIONS (5)
  - Psychomotor retardation [Unknown]
  - Drug interaction [Unknown]
  - Clonus [Unknown]
  - Sopor [Unknown]
  - Toxicity to various agents [Unknown]

NARRATIVE: CASE EVENT DATE: 20181002
